FAERS Safety Report 15735965 (Version 1)
Quarter: 2018Q4

REPORT INFORMATION
  Report Type: Report from Study
  Country: JP (occurrence: JP)
  Receive Date: 20181218
  Receipt Date: 20181218
  Transmission Date: 20190205
  Serious: Yes (Hospitalization, Other)
  Sender: FDA-Public Use
  Company Number: JP-MYLANLABS-2018M1092694

PATIENT
  Age: 63 Year
  Sex: Male

DRUGS (6)
  1. GRAZOPREVIR. [Interacting]
     Active Substance: GRAZOPREVIR
     Indication: HEPATITIS C
     Route: 065
  2. MYCOPHENOLATE MOFETIL. [Suspect]
     Active Substance: MYCOPHENOLATE MOFETIL
     Indication: IMMUNOSUPPRESSANT DRUG THERAPY
     Route: 065
  3. PREDNISOLONE. [Suspect]
     Active Substance: PREDNISOLONE
     Indication: IMMUNOSUPPRESSANT DRUG THERAPY
     Route: 065
  4. ELBASVIR. [Interacting]
     Active Substance: ELBASVIR
     Indication: HEPATITIS C
     Route: 065
  5. TACROLIMUS. [Suspect]
     Active Substance: TACROLIMUS
     Indication: IMMUNOSUPPRESSANT DRUG THERAPY
     Route: 065
  6. TACROLIMUS. [Interacting]
     Active Substance: TACROLIMUS
     Dosage: 5 MILLIGRAM, QD
     Route: 065

REACTIONS (3)
  - Drug level increased [Recovering/Resolving]
  - Cytomegalovirus gastritis [Recovering/Resolving]
  - Drug interaction [Recovering/Resolving]
